FAERS Safety Report 9177773 (Version 3)
Quarter: 2013Q2

REPORT INFORMATION
  Report Type: Spontaneous
  Country: CO (occurrence: CO)
  Receive Date: 20121010
  Receipt Date: 20130607
  Transmission Date: 20140414
  Serious: Yes (Hospitalization)
  Sender: FDA-Public Use
  Company Number: CO-BIOMARINP-003098

PATIENT
  Age: 9 Year
  Sex: Female
  Weight: 18 kg

DRUGS (3)
  1. NAGLAZYME [Suspect]
     Indication: MUCOPOLYSACCHARIDOSIS VI
     Dosage: 20MG,QW
     Route: 041
     Dates: start: 20091111
  2. LORATADINE [Concomitant]
     Indication: PREMEDICATION
     Dosage: UNKUNK,QW
     Route: 042
  3. ENALAPRIL [Concomitant]
     Indication: PRODUCT USED FOR UNKNOWN INDICATION

REACTIONS (2)
  - Pneumonia [Recovering/Resolving]
  - Asthmatic crisis [Recovering/Resolving]
